FAERS Safety Report 16583293 (Version 1)
Quarter: 2019Q3

REPORT INFORMATION
  Report Type: Spontaneous
  Country: US (occurrence: US)
  Receive Date: 20190603
  Receipt Date: 20190603
  Transmission Date: 20191004
  Serious: Yes (Hospitalization)
  Sender: FDA-Public Use
  Company Number: None

PATIENT
  Age: 67 Year
  Sex: Female
  Weight: 83.91 kg

DRUGS (1)
  1. AMLODIPINE/BENAZEPRIL [Suspect]
     Active Substance: AMLODIPINE BESYLATE\BENAZEPRIL HYDROCHLORIDE
     Indication: HYPERTENSION
     Dosage: ?          QUANTITY:1 DF DOSAGE FORM;?
     Route: 048
     Dates: start: 20190126, end: 20190507

REACTIONS (3)
  - Product impurity [None]
  - Angioedema [None]
  - Recalled product administered [None]

NARRATIVE: CASE EVENT DATE: 20190507
